FAERS Safety Report 9259915 (Version 1)
Quarter: 2013Q2

REPORT INFORMATION
  Report Type: Spontaneous
  Country: NO (occurrence: NO)
  Receive Date: 20130429
  Receipt Date: 20130429
  Transmission Date: 20140414
  Serious: Yes (Hospitalization, Other)
  Sender: FDA-Public Use
  Company Number: NO-ROCHE-1215126

PATIENT
  Age: 50 Year
  Sex: Male

DRUGS (2)
  1. RIBAVIRIN [Suspect]
     Indication: HEPATITIS C
     Route: 048
  2. PEGINTRON [Suspect]
     Indication: HEPATITIS C
     Route: 065

REACTIONS (11)
  - Chills [Unknown]
  - Muscle spasms [Unknown]
  - Abdominal pain upper [Unknown]
  - Abdominal pain upper [Unknown]
  - Dyspnoea [Unknown]
  - Feeling abnormal [Unknown]
  - Dysgeusia [Unknown]
  - Pyrexia [Unknown]
  - Arthralgia [Unknown]
  - Influenza like illness [Unknown]
  - Asthenia [Unknown]
